FAERS Safety Report 15844074 (Version 1)
Quarter: 2019Q1

REPORT INFORMATION
  Report Type: Spontaneous
  Country: US (occurrence: US)
  Receive Date: 20190118
  Receipt Date: 20190118
  Transmission Date: 20190417
  Serious: No
  Sender: FDA-Public Use
  Company Number: US-HERITAGE PHARMACEUTICALS-2018HTG00159

PATIENT
  Age: 65 Year
  Sex: Female
  Weight: 59.41 kg

DRUGS (9)
  1. DOXYCYCLINE. [Suspect]
     Active Substance: DOXYCYCLINE
     Indication: OCULAR ROSACEA
     Dosage: 50 MG, 2X/DAY
     Route: 048
     Dates: start: 20180525, end: 2018
  2. CHROMIUM PICOLINATE [Concomitant]
     Active Substance: CHROMIUM PICOLINATE
     Dosage: 1000 ?G, 1X/DAY
  3. BERBERINE [Concomitant]
     Active Substance: BERBERINE
     Dosage: 500 MG, 2X/DAY
  4. D3-K2 [Concomitant]
  5. DOXYCYCLINE. [Suspect]
     Active Substance: DOXYCYCLINE
     Dosage: 100 MG, 1X/DAY
     Route: 048
     Dates: start: 2018, end: 20180628
  6. FISH OIL [Concomitant]
     Active Substance: FISH OIL
     Dosage: 1500 UNK, 2X/DAY
  7. VITAMIN B12 [Concomitant]
     Active Substance: CYANOCOBALAMIN
     Dosage: UNK, AS NEEDED
     Route: 060
  8. CONCENTRACE MINERAL DROPS [Concomitant]
     Dosage: 7 GTT, 1X/DAY
  9. CURCUMIN [Concomitant]
     Active Substance: CURCUMIN
     Dosage: 500 MG, 2X/DAY

REACTIONS (5)
  - Sleep disorder [Recovering/Resolving]
  - Inappropriate schedule of product administration [Recovered/Resolved]
  - Pain [Recovered/Resolved]
  - Nocturia [Recovering/Resolving]
  - Hot flush [Recovering/Resolving]

NARRATIVE: CASE EVENT DATE: 2018
